FAERS Safety Report 4524369-2 (Version None)
Quarter: 2004Q4

REPORT INFORMATION
  Report Type: 
  Country: None (occurrence: None)
  Receive Date: 20041119
  Receipt Date: 20040823
  Transmission Date: 20050328
  Serious: No
  Sender: FDA-Public Use
  Company Number: 208626

PATIENT
  Age: 53 Year
  Sex: Male

DRUGS (1)
  1. RAPTIVA [Suspect]
     Indication: PSORIASIS
     Dosage: 0.85 ML, SUBCUTANEOUS
     Route: 058
     Dates: start: 20040809

REACTIONS (1)
  - INFLUENZA LIKE ILLNESS [None]
